FAERS Safety Report 14962443 (Version 1)
Quarter: 2018Q2

REPORT INFORMATION
  Report Type: Spontaneous
  Country: US (occurrence: US)
  Receive Date: 20180510
  Receipt Date: 20180510
  Transmission Date: 20180711
  Serious: Yes (Other)
  Sender: FDA-Public Use
  Company Number: None

PATIENT
  Age: 84 Year
  Sex: Male

DRUGS (1)
  1. CEFTRIAXONE. [Suspect]
     Active Substance: CEFTRIAXONE
     Indication: URINARY TRACT INFECTION
     Route: 042
     Dates: start: 20180305, end: 20180305

REACTIONS (6)
  - Blood pressure decreased [None]
  - Unresponsive to stimuli [None]
  - Syncope [None]
  - Nausea [None]
  - Infusion [None]
  - Cold sweat [None]

NARRATIVE: CASE EVENT DATE: 20180305
